FAERS Safety Report 14310674 (Version 1)
Quarter: 2017Q4

REPORT INFORMATION
  Report Type: Spontaneous
  Country: US (occurrence: US)
  Receive Date: 20171220
  Receipt Date: 20171220
  Transmission Date: 20180321
  Serious: Yes (Hospitalization)
  Sender: FDA-Public Use
  Company Number: US-TEVA-2017-US-834580

PATIENT
  Age: 8 Decade
  Sex: Female

DRUGS (1)
  1. TREANDA [Suspect]
     Active Substance: BENDAMUSTINE HYDROCHLORIDE
     Indication: PLASMA CELL MYELOMA
     Dosage: 70MG/M2 ON DAY 1 AND DAY 8

REACTIONS (3)
  - Haematuria [Unknown]
  - Cystitis haemorrhagic [Unknown]
  - Urine odour abnormal [Unknown]
